FAERS Safety Report 24021666 (Version 3)
Quarter: 2024Q2

REPORT INFORMATION
  Report Type: Spontaneous
  Country: CA (occurrence: CA)
  Receive Date: 20240627
  Receipt Date: 20240627
  Transmission Date: 20240717
  Serious: No
  Sender: FDA-Public Use
  Company Number: CA-ROCHE-3466240

PATIENT
  Age: 78 Year
  Sex: Male

DRUGS (4)
  1. VABYSMO [Suspect]
     Active Substance: FARICIMAB\FARICIMAB-SVOA
     Indication: Neovascular age-related macular degeneration
     Dosage: SUBSEQUENT DOSES ON 09/NOV/2023, 07/DEC/2023, 05/JAN/2024, 05/FEB/2024, 04/MAR/2024, 02/APR/2024
     Route: 065
     Dates: start: 20231013
  2. VABYSMO [Suspect]
     Active Substance: FARICIMAB\FARICIMAB-SVOA
     Route: 065
  3. EYLEA [Concomitant]
     Active Substance: AFLIBERCEPT
     Dates: start: 20201102, end: 20230914
  4. LUCENTIS [Concomitant]
     Active Substance: RANIBIZUMAB
     Dates: start: 20200317, end: 20201002

REACTIONS (1)
  - Vitreous floaters [Recovering/Resolving]

NARRATIVE: CASE EVENT DATE: 20240205
